FAERS Safety Report 4661323-4 (Version None)
Quarter: 2005Q2

REPORT INFORMATION
  Report Type: 
  Country: None (occurrence: None)
  Receive Date: 20050427
  Receipt Date: 20050215
  Transmission Date: 20051028
  Serious: No
  Sender: FDA-Public Use
  Company Number: WAES 0502USA02196

PATIENT
  Age: 30 Year
  Sex: Female

DRUGS (6)
  1. EMEND [Suspect]
     Indication: NEOPLASM MALIGNANT
     Dosage: SEE IMAGE
     Route: 048
  2. VINBLASTINE [Suspect]
     Indication: HODGKIN'S DISEASE
  3. ADRIAMYCIN PFS [Concomitant]
  4. DECADRON [Concomitant]
  5. BLEOMYCIN [Concomitant]
  6. DACARBAZINE [Concomitant]

REACTIONS (1)
  - PAIN [None]
